FAERS Safety Report 20833752 (Version 2)
Quarter: 2022Q2

REPORT INFORMATION
  Report Type: Spontaneous
  Country: FR (occurrence: FR)
  Receive Date: 20220516
  Receipt Date: 20220524
  Transmission Date: 20220721
  Serious: Yes (Death, Hospitalization, Other)
  Sender: FDA-Public Use
  Company Number: FR-Accord-252206

PATIENT
  Age: 59 Year
  Sex: Female

DRUGS (3)
  1. TEMOZOLOMIDE [Suspect]
     Active Substance: TEMOZOLOMIDE
     Indication: Glioblastoma
     Dosage: 75 MG/SQ. METER (SECOND ADJUVANT TMZ CYCLE (200 MG/M2))
     Route: 065
  2. TEMOZOLOMIDE [Suspect]
     Active Substance: TEMOZOLOMIDE
     Dosage: 200 MILLIGRAM/SQ. METER (150-200 MG/M2, CYCLIC (TWO NEO-ADJUVANT CYCLES))
     Route: 065
  3. METHYLPREDNISOLONE [Concomitant]
     Active Substance: METHYLPREDNISOLONE
     Dosage: 16 MILLIGRAM, QD, FOR A SHORT PERIOD BEFORE AND DURING CHEMORADIATION.
     Route: 048

REACTIONS (2)
  - Progressive multifocal leukoencephalopathy [Fatal]
  - Neurological decompensation [Fatal]
